FAERS Safety Report 23683319 (Version 1)
Quarter: 2024Q1

REPORT INFORMATION
  Report Type: Spontaneous
  Country: CN (occurrence: CN)
  Receive Date: 20240328
  Receipt Date: 20240328
  Transmission Date: 20240409
  Serious: Yes (Hospitalization)
  Sender: FDA-Public Use
  Company Number: CN-ELI_LILLY_AND_COMPANY-CN202403011803

PATIENT
  Age: 72 Year
  Sex: Female
  Weight: 80 kg

DRUGS (1)
  1. ABEMACICLIB [Suspect]
     Active Substance: ABEMACICLIB
     Indication: Breast cancer
     Dosage: 1 DOSAGE FORM, BID
     Route: 048
     Dates: start: 20230701, end: 20240311

REACTIONS (4)
  - Rash [Recovering/Resolving]
  - Dermatitis allergic [Recovering/Resolving]
  - Dry skin [Recovering/Resolving]
  - Skin fissures [Recovering/Resolving]

NARRATIVE: CASE EVENT DATE: 20240226
